FAERS Safety Report 13042136 (Version 2)
Quarter: 2017Q1

REPORT INFORMATION
  Report Type: Spontaneous
  Country: US (occurrence: US)
  Receive Date: 20161219
  Receipt Date: 20170126
  Transmission Date: 20170428
  Serious: No
  Sender: FDA-Public Use
  Company Number: US-PFIZER INC-2016581912

PATIENT
  Age: 73 Year
  Sex: Female
  Weight: 88 kg

DRUGS (1)
  1. CLINDAMYCIN PHOSPHATE. [Suspect]
     Active Substance: CLINDAMYCIN PHOSPHATE
     Indication: ROSACEA
     Dosage: UNK
     Route: 061
     Dates: start: 20161211

REACTIONS (3)
  - Erythema [Unknown]
  - Paraesthesia [Recovering/Resolving]
  - Skin burning sensation [Recovering/Resolving]

NARRATIVE: CASE EVENT DATE: 20161211
